FAERS Safety Report 23854751 (Version 1)
Quarter: 2024Q2

REPORT INFORMATION
  Report Type: Spontaneous
  Country: US (occurrence: US)
  Receive Date: 20240514
  Receipt Date: 20240514
  Transmission Date: 20240716
  Serious: Yes (Other)
  Sender: FDA-Public Use
  Company Number: US-009507513-2405USA002957

PATIENT
  Sex: Male

DRUGS (4)
  1. KEYTRUDA [Suspect]
     Active Substance: PEMBROLIZUMAB
     Indication: Lung neoplasm malignant
     Dosage: 400 MILLIGRAM, EVERY 6 WEEKS, ROUTE OF ADMINISTRATION: INFUSION
     Dates: start: 2023
  2. GLEEVEC [Concomitant]
     Active Substance: IMATINIB MESYLATE
  3. CYMBALTA [Concomitant]
     Active Substance: DULOXETINE HYDROCHLORIDE
  4. HYDROCODONE [Concomitant]
     Active Substance: HYDROCODONE
     Dosage: UNK

REACTIONS (2)
  - Spinal decompression [Unknown]
  - Mobility decreased [Not Recovered/Not Resolved]
